FAERS Safety Report 4941862-9 (Version None)
Quarter: 2006Q1

REPORT INFORMATION
  Report Type: 
  Country: None (occurrence: None)
  Receive Date: 20060308
  Receipt Date: 20060222
  Transmission Date: 20060701
  Serious: Yes (Life-Threatening, Hospitalization)
  Sender: FDA-Public Use
  Company Number: RENA-11673

PATIENT
  Age: 42 Year
  Sex: Male
  Weight: 68 kg

DRUGS (9)
  1. RENAGEL [Suspect]
     Indication: HYPERPHOSPHATAEMIA
     Dosage: 0.25 G TID PO
     Route: 048
     Dates: start: 20040814, end: 20041020
  2. CALTAN (CALCIUM CARBONATE) [Concomitant]
  3. BIOTHREE (CLOSTRIDIUM BUTYRICUM) [Concomitant]
  4. ALFAROL [Concomitant]
  5. ASPIRIN [Concomitant]
  6. MICARDIS [Concomitant]
  7. NORVASC [Concomitant]
  8. ARTIST [Concomitant]
  9. FAMOTIDINE [Concomitant]

REACTIONS (2)
  - COLITIS ISCHAEMIC [None]
  - LARGE INTESTINE PERFORATION [None]
